FAERS Safety Report 5081337-2 (Version None)
Quarter: 2006Q3

REPORT INFORMATION
  Report Type: 
  Country: None (occurrence: None)
  Receive Date: 20060811
  Receipt Date: 20060728
  Transmission Date: 20061208
  Serious: Yes (Hospitalization)
  Sender: FDA-Public Use
  Company Number: R301636-315-USA

PATIENT
  Age: 67 Year
  Sex: Female
  Weight: 119 kg

DRUGS (9)
  1. ACIPHEX [Suspect]
     Indication: DYSPEPSIA
     Dosage: 1 TABLET, ORAL
     Route: 048
     Dates: start: 20060527
  2. NORVASC [Concomitant]
  3. DIOVAN HCT (CO-DIOVAN) [Concomitant]
  4. LANTUS [Concomitant]
  5. LIPITOR [Concomitant]
  6. PROZAC [Concomitant]
  7. MULTIVITAMIN [Concomitant]
  8. VITAMIN E [Concomitant]
  9. CALCIUM (CALCIUM) [Concomitant]

REACTIONS (1)
  - PNEUMONIA [None]
